FAERS Safety Report 15928578 (Version 2)
Quarter: 2019Q2

REPORT INFORMATION
  Report Type: Spontaneous
  Country: JP (occurrence: JP)
  Receive Date: 20190206
  Receipt Date: 20190429
  Transmission Date: 20190711
  Serious: Yes (Disabling, Other)
  Sender: FDA-Public Use
  Company Number: JP-ROCHE-2259565

PATIENT
  Age: 64 Year
  Sex: Male

DRUGS (1)
  1. XOFLUZA [Suspect]
     Active Substance: BALOXAVIR MARBOXIL
     Indication: INFLUENZA
     Dosage: 2 DOSAGE FORM
     Route: 048
     Dates: start: 20190116, end: 20190116

REACTIONS (3)
  - Altered state of consciousness [Unknown]
  - Fall [Unknown]
  - Spinal cord injury [Recovering/Resolving]

NARRATIVE: CASE EVENT DATE: 20190117
